FAERS Safety Report 25461878 (Version 1)
Quarter: 2025Q2

REPORT INFORMATION
  Report Type: Spontaneous
  Country: US (occurrence: None)
  Receive Date: 20250618
  Receipt Date: 20250618
  Transmission Date: 20250717
  Serious: Yes (Hospitalization)
  Sender: FDA-CTU
  Company Number: None

PATIENT
  Age: 61 Year
  Sex: Female
  Weight: 107.6 kg

DRUGS (1)
  1. ELAHERE [Suspect]
     Active Substance: MIRVETUXIMAB SORAVTANSINE-GYNX
     Indication: Ovarian cancer
     Dates: start: 20241107

REACTIONS (4)
  - Seizure [None]
  - Vomiting [None]
  - Hyperglycaemia [None]
  - Diabetic ketoacidosis [None]

NARRATIVE: CASE EVENT DATE: 20250528
